FAERS Safety Report 4529996-4 (Version None)
Quarter: 2004Q4

REPORT INFORMATION
  Report Type: 
  Country: None (occurrence: None)
  Receive Date: 20041217
  Receipt Date: 20041204
  Transmission Date: 20050328
  Serious: Yes (Death)
  Sender: FDA-Public Use
  Company Number: BE-JNJFOC-20040800675

PATIENT
  Age: 81 Year
  Sex: Male

DRUGS (3)
  1. RISPERDAL [Suspect]
     Route: 049
  2. CORDARONE [Concomitant]
  3. EBIXA [Concomitant]

REACTIONS (4)
  - ALVEOLITIS [None]
  - BRONCHITIS [None]
  - ORTHOSTATIC HYPOTENSION [None]
  - SYNCOPE [None]
